FAERS Safety Report 7930357-6 (Version None)
Quarter: 2011Q4

REPORT INFORMATION
  Report Type: 
  Country: None (occurrence: None)
  Receive Date: 20111121
  Receipt Date: 20110819
  Transmission Date: 20120403
  Serious: No
  Sender: FDA-Public Use
  Company Number: US-BAYER-2011-079487

PATIENT
  Sex: Female

DRUGS (3)
  1. ALEVE (CAPLET) [Suspect]
     Indication: PAIN IN EXTREMITY
  2. IBUPROFEN (ADVIL) [Concomitant]
  3. TIGER [Concomitant]

REACTIONS (1)
  - PAIN IN EXTREMITY [None]
